FAERS Safety Report 6178157-4 (Version None)
Quarter: 2009Q2

REPORT INFORMATION
  Report Type: 
  Country: None (occurrence: None)
  Receive Date: 20090504
  Receipt Date: 20090213
  Transmission Date: 20091009
  Serious: No
  Sender: FDA-Public Use
  Company Number: US-ALEXION-A200900124

PATIENT
  Sex: Female
  Weight: 76.644 kg

DRUGS (6)
  1. SOLIRIS [Suspect]
     Indication: PAROXYSMAL NOCTURNAL HAEMOGLOBINURIA
     Dosage: UNK, UNK
     Route: 042
  2. SOLIRIS [Suspect]
     Dosage: 900 MG, Q2WKS
  3. COUMADIN [Concomitant]
     Dosage: UNK
  4. FOLIC ACID [Concomitant]
     Indication: PAROXYSMAL NOCTURNAL HAEMOGLOBINURIA
     Dosage: UNK
     Route: 048
  5. ACYCLOVIR [Concomitant]
     Dosage: UNK
     Route: 048
  6. DIFLUCAN [Concomitant]
     Dosage: UNK
     Route: 048

REACTIONS (4)
  - FATIGUE [None]
  - HAEMOLYSIS [None]
  - MUSCULOSKELETAL DISCOMFORT [None]
  - PNEUMONIA [None]
